FAERS Safety Report 5365461-2 (Version None)
Quarter: 2007Q2

REPORT INFORMATION
  Report Type: 
  Country: None (occurrence: None)
  Receive Date: 20070530
  Receipt Date: 20070110
  Transmission Date: 20071010
  Serious: No
  Sender: FDA-Public Use
  Company Number: 2006PV017489

PATIENT
  Age: 74 Year
  Sex: Female
  Weight: 113.3993 kg

DRUGS (8)
  1. BYETTA [Suspect]
     Indication: DIABETES MELLITUS NON-INSULIN-DEPENDENT
     Dosage: 5 MCG; BID; SC, SC, 10 MCG; BID; SC, 5 MCG; BID; SC, 10 MCG; BID; SC, 10 MCG; QAM; SC, 5 MCG; BID,
     Route: 058
     Dates: start: 20060821, end: 20060801
  2. BYETTA [Suspect]
     Indication: DIABETES MELLITUS NON-INSULIN-DEPENDENT
     Dosage: 5 MCG; BID; SC, SC, 10 MCG; BID; SC, 5 MCG; BID; SC, 10 MCG; BID; SC, 10 MCG; QAM; SC, 5 MCG; BID,
     Route: 058
     Dates: start: 20060526, end: 20060820
  3. BYETTA [Suspect]
     Indication: DIABETES MELLITUS NON-INSULIN-DEPENDENT
     Dosage: 5 MCG; BID; SC, SC, 10 MCG; BID; SC, 5 MCG; BID; SC, 10 MCG; BID; SC, 10 MCG; QAM; SC, 5 MCG; BID,
     Route: 058
     Dates: start: 20060201, end: 20061101
  4. BYETTA [Suspect]
     Indication: DIABETES MELLITUS NON-INSULIN-DEPENDENT
     Dosage: 5 MCG; BID; SC, SC, 10 MCG; BID; SC, 5 MCG; BID; SC, 10 MCG; BID; SC, 10 MCG; QAM; SC, 5 MCG; BID,
     Route: 058
     Dates: start: 20060801, end: 20061107
  5. BYETTA [Suspect]
     Indication: DIABETES MELLITUS NON-INSULIN-DEPENDENT
     Dosage: 5 MCG; BID; SC, SC, 10 MCG; BID; SC, 5 MCG; BID; SC, 10 MCG; BID; SC, 10 MCG; QAM; SC, 5 MCG; BID,
     Route: 058
     Dates: start: 20061101
  6. BYETTA [Suspect]
     Indication: DIABETES MELLITUS NON-INSULIN-DEPENDENT
     Dosage: 5 MCG; BID; SC, SC, 10 MCG; BID; SC, 5 MCG; BID; SC, 10 MCG; BID; SC, 10 MCG; QAM; SC, 5 MCG; BID,
     Route: 058
     Dates: start: 20061108
  7. METFORMIN HCL [Concomitant]
  8. PRILOSEC [Concomitant]

REACTIONS (8)
  - CONDITION AGGRAVATED [None]
  - DECREASED APPETITE [None]
  - DYSGEUSIA [None]
  - DYSPEPSIA [None]
  - EARLY SATIETY [None]
  - HYPERHIDROSIS [None]
  - NAUSEA [None]
  - WEIGHT DECREASED [None]
